FAERS Safety Report 19613752 (Version 1)
Quarter: 2021Q3

REPORT INFORMATION
  Report Type: Spontaneous
  Country: IN (occurrence: IN)
  Receive Date: 20210723
  Receipt Date: 20210723
  Transmission Date: 20211014
  Serious: Yes (Life-Threatening, Disabling, Congenital Anomaly, Other)
  Sender: FDA-Public Use
  Company Number: None

PATIENT
  Age: 26 Year
  Sex: Female
  Weight: 60 kg

DRUGS (15)
  1. TAXIM [Concomitant]
  2. FOLIC ACID. [Concomitant]
     Active Substance: FOLIC ACID
  3. HUCOG [Concomitant]
  4. MENOTOS HP [Concomitant]
  5. ZINCOFER/SOLFE [Concomitant]
  6. ELTROXIN [Concomitant]
     Active Substance: LEVOTHYROXINE
  7. SUSTEN [Concomitant]
  8. LYCORED [Concomitant]
     Active Substance: VITAMINS
  9. INJECTION BROGYN 175 IU (HCG) [Suspect]
     Active Substance: CHORIOGONADOTROPIN ALFA
     Indication: PRODUCT USED FOR UNKNOWN INDICATION
     Route: 030
     Dates: start: 20201002, end: 20201016
  10. CETROLIX [Concomitant]
  11. AQUAGEST 25MG (PROGESTERONE) [Suspect]
     Active Substance: PROGESTERONE
     Indication: AMENORRHOEA
     Route: 030
     Dates: start: 20201102, end: 20201116
  12. LETROZOLE. [Concomitant]
     Active Substance: LETROZOLE
  13. VITAMIN C [Concomitant]
     Active Substance: ASCORBIC ACID
  14. OVRAL L [Concomitant]
  15. EVION [Concomitant]
     Active Substance: .ALPHA.-TOCOPHEROL ACETATE

REACTIONS (8)
  - Nausea [None]
  - Treatment failure [None]
  - Abdominal pain [None]
  - Asthma [None]
  - Cough [None]
  - Vitamin D deficiency [None]
  - Rickets [None]
  - Pyrexia [None]

NARRATIVE: CASE EVENT DATE: 20201129
